FAERS Safety Report 6450005-4 (Version None)
Quarter: 2009Q4

REPORT INFORMATION
  Report Type: 
  Country: None (occurrence: None)
  Receive Date: 20091120
  Receipt Date: 20091120
  Transmission Date: 20100525
  Serious: No
  Sender: FDA-Public Use
  Company Number: None

PATIENT
  Age: 42 Year
  Sex: Female
  Weight: 74.8435 kg

DRUGS (1)
  1. CALCIUM + D 600MG/400IU WALGREENS [Suspect]
     Dosage: 1 2X DAILY PO
     Route: 048
     Dates: start: 20091116, end: 20091118

REACTIONS (3)
  - HEADACHE [None]
  - NAUSEA [None]
  - PRODUCT CONTAMINATION CHEMICAL [None]
